FAERS Safety Report 10987976 (Version 2)
Quarter: 2015Q2

REPORT INFORMATION
  Report Type: Spontaneous
  Country: US (occurrence: US)
  Receive Date: 20150404
  Receipt Date: 20150525
  Transmission Date: 20150821
  Serious: No
  Sender: FDA-Public Use
  Company Number: US-JNJFOC-20131011180

PATIENT
  Age: 59 Year
  Sex: Female

DRUGS (9)
  1. LASIX [Concomitant]
     Active Substance: FUROSEMIDE
  2. ASACOL [Concomitant]
     Active Substance: MESALAMINE
  3. FENTANYL. [Concomitant]
     Active Substance: FENTANYL
  4. LISINOPRIL. [Concomitant]
     Active Substance: LISINOPRIL
  5. KLOR-CON [Concomitant]
     Active Substance: POTASSIUM CHLORIDE
  6. REMICADE [Suspect]
     Active Substance: INFLIXIMAB
     Indication: COLITIS ULCERATIVE
     Route: 042
     Dates: start: 201111
  7. SIMVASTATIN. [Concomitant]
     Active Substance: SIMVASTATIN
  8. TOPROL XL [Concomitant]
     Active Substance: METOPROLOL SUCCINATE
  9. OMEPRAZOLE. [Concomitant]
     Active Substance: OMEPRAZOLE

REACTIONS (1)
  - Rash [Not Recovered/Not Resolved]
